FAERS Safety Report 4435365-8 (Version None)
Quarter: 2004Q3

REPORT INFORMATION
  Report Type: 
  Country: None (occurrence: None)
  Receive Date: 20040826
  Receipt Date: 20040820
  Transmission Date: 20050211
  Serious: Yes (Death)
  Sender: FDA-Public Use
  Company Number: 200410778BVD

PATIENT
  Age: 80 Year
  Sex: Male
  Weight: 54.5 kg

DRUGS (4)
  1. CIPROFLOXACIN [Suspect]
     Indication: URINARY TRACT INFECTION
     Dosage: 1000 MG, TOTAL DAILY, ORAL
     Route: 048
     Dates: start: 20040129, end: 20040201
  2. AUGMENTAN ORAL [Concomitant]
  3. ENOXAPARIN SODIUM [Concomitant]
  4. ZYLORIC [Concomitant]

REACTIONS (13)
  - AORTIC ANEURYSM [None]
  - AORTIC ATHEROSCLEROSIS [None]
  - AORTIC THROMBOSIS [None]
  - CIRCULATORY COLLAPSE [None]
  - HAEMOGLOBIN DECREASED [None]
  - HEPATIC FAILURE [None]
  - HEPATIC INFARCTION [None]
  - HYPOGLYCAEMIA [None]
  - MESENTERIC ATHEROSCLEROSIS [None]
  - MESENTERIC OCCLUSION [None]
  - NECROSIS [None]
  - PERITONEAL ABSCESS [None]
  - VOMITING [None]
